FAERS Safety Report 13083843 (Version 1)
Quarter: 2017Q1

REPORT INFORMATION
  Report Type: Spontaneous
  Country: US (occurrence: US)
  Receive Date: 20170104
  Receipt Date: 20170104
  Transmission Date: 20170428
  Serious: Yes (Hospitalization)
  Sender: FDA-Public Use
  Company Number: US-ZYDUS-013041

PATIENT
  Age: 93 Year
  Sex: Female
  Weight: 109 kg

DRUGS (2)
  1. PROPOFOL. [Interacting]
     Active Substance: PROPOFOL
     Indication: PRODUCT USED FOR UNKNOWN INDICATION
     Route: 065
  2. VALPROIC ACID. [Suspect]
     Active Substance: VALPROIC ACID
     Indication: MYOCLONUS
     Dosage: 30 MG/KG/DAY
     Route: 065

REACTIONS (3)
  - Drug level increased [Unknown]
  - Drug interaction [Unknown]
  - Hyperammonaemia [Unknown]
